FAERS Safety Report 8064401-5 (Version None)
Quarter: 2012Q1

REPORT INFORMATION
  Report Type: 
  Country: None (occurrence: None)
  Receive Date: 20120123
  Receipt Date: 20120118
  Transmission Date: 20120608
  Serious: Yes (Other)
  Sender: FDA-Public Use
  Company Number: US-PFIZER INC-2011300426

PATIENT
  Sex: Male
  Weight: 78.912 kg

DRUGS (2)
  1. ROBITUSSIN COUGH AND CHEST CONGESTION DM MAX [Suspect]
     Indication: COUGH
     Dosage: TWO TEASPOONFULS, 1X/DAY
     Route: 048
     Dates: start: 20111208, end: 20111208
  2. ROBITUSSIN COUGH AND CHEST CONGESTION DM MAX [Suspect]
     Indication: NASOPHARYNGITIS

REACTIONS (3)
  - COGNITIVE DISORDER [None]
  - DRUG INTOLERANCE [None]
  - VISUAL IMPAIRMENT [None]
